FAERS Safety Report 16948315 (Version 6)
Quarter: 2020Q2

REPORT INFORMATION
  Report Type: Spontaneous
  Country: CA (occurrence: CA)
  Receive Date: 20191022
  Receipt Date: 20200402
  Transmission Date: 20200713
  Serious: Yes (Other)
  Sender: FDA-Public Use
  Company Number: CA-CELLTRION INC.-2019CA023631

PATIENT

DRUGS (11)
  1. INFLECTRA [Suspect]
     Active Substance: INFLIXIMAB-DYYB
     Dosage: 500 MG, EVERY 4 WEEKS
     Route: 042
     Dates: start: 20191009, end: 20191009
  2. INFLECTRA [Suspect]
     Active Substance: INFLIXIMAB-DYYB
     Dosage: 500 MG WEEK 0, 2, 6, THEN EVERY 8 WEEKS
     Route: 042
     Dates: start: 20190409, end: 20190715
  3. INFLECTRA [Suspect]
     Active Substance: INFLIXIMAB-DYYB
     Dosage: 500 MG, EVERY 4 WEEKS
     Route: 042
     Dates: start: 20191011, end: 20191011
  4. INFLECTRA [Suspect]
     Active Substance: INFLIXIMAB-DYYB
     Dosage: 500 MG, EVERY 4 WEEKS
     Route: 042
     Dates: start: 20190814, end: 20190814
  5. INFLECTRA [Suspect]
     Active Substance: INFLIXIMAB-DYYB
     Dosage: 500 MG WEEK 0, 2, 6, THEN EVERY 8 WEEKS
     Route: 042
     Dates: start: 20190423, end: 20190423
  6. DIPHENHYDRAMINE. [Concomitant]
     Active Substance: DIPHENHYDRAMINE
     Dosage: 50 MG, UNK
     Route: 048
     Dates: start: 20190423, end: 20190423
  7. INFLECTRA [Suspect]
     Active Substance: INFLIXIMAB-DYYB
     Indication: CROHN^S DISEASE
     Dosage: 500 MG WEEK 0, 2, 6, THEN EVERY 8 WEEKS
     Route: 042
     Dates: start: 20190409, end: 20190409
  8. PREDNISONE. [Concomitant]
     Active Substance: PREDNISONE
     Dosage: 40 MG, 1X/DAY TAPERING DOSE
     Route: 048
     Dates: start: 20190228
  9. ACETAMINOPHEN. [Concomitant]
     Active Substance: ACETAMINOPHEN
     Dosage: 650 MG, UNK
     Dates: start: 20190423, end: 20190423
  10. HYDROCORTISONE. [Concomitant]
     Active Substance: HYDROCORTISONE
     Dosage: 100 MG, UNK
     Route: 042
     Dates: start: 20190423, end: 20190423
  11. INFLECTRA [Suspect]
     Active Substance: INFLIXIMAB-DYYB
     Dosage: 500 MG WEEK 0, 2, 6, THEN EVERY 8 WEEKS
     Route: 042
     Dates: start: 20190521, end: 20190521

REACTIONS (11)
  - Flushing [Unknown]
  - Dizziness [Recovered/Resolved]
  - Hypotension [Recovered/Resolved]
  - Inappropriate schedule of product administration [Unknown]
  - Malaise [Recovered/Resolved]
  - Blood pressure fluctuation [Unknown]
  - Eye movement disorder [Unknown]
  - Drug level decreased [Unknown]
  - Off label use [Unknown]
  - Loss of consciousness [Unknown]
  - Drug specific antibody present [Unknown]

NARRATIVE: CASE EVENT DATE: 20190423
